FAERS Safety Report 8974142 (Version 2)
Quarter: 2013Q1

REPORT INFORMATION
  Report Type: Spontaneous
  Country: GB (occurrence: None)
  Receive Date: 20121211
  Receipt Date: 20130208
  Transmission Date: 20140127
  Serious: No
  Sender: FDA-Public Use
  Company Number: 1211DEU012759

PATIENT
  Age: 67 Year
  Sex: Male
  Weight: 90 kg

DRUGS (11)
  1. KEIMAX [Suspect]
     Indication: BRONCHITIS CHRONIC
     Route: 048
     Dates: start: 20121120
  2. KEIMAX [Suspect]
     Indication: CONDITION AGGRAVATED
     Route: 048
     Dates: start: 20121120
  3. KEIMAX [Suspect]
     Indication: CHRONIC OBSTRUCTIVE PULMONARY DISEASE
     Route: 048
     Dates: start: 20121120
  4. LYRICA (PREGABALIN) [Concomitant]
  5. FRISIUM [Concomitant]
  6. METOPROLOL SUCINATE (METOPROLOL SUCCINATE) [Concomitant]
  7. ZOPICLONE (ZOPICLONE) [Concomitant]
  8. SPIRIVA (TIOTROPIUM BROMIDE) [Concomitant]
  9. BUDIAIR (BUDESONIDE) [Concomitant]
  10. PANTOPRAZOLE (PANTOPRAZOLE) [Concomitant]
  11. PREDNISOLONE (PREDNISOLONE) [Concomitant]

REACTIONS (3)
  - Dysgeusia [None]
  - Drug effect decreased [None]
  - Incorrect dose administered [None]
